FAERS Safety Report 5648814-4 (Version None)
Quarter: 2008Q1

REPORT INFORMATION
  Report Type: 
  Country: None (occurrence: None)
  Receive Date: 20080304
  Receipt Date: 20080225
  Transmission Date: 20080703
  Serious: Yes (Other)
  Sender: FDA-Public Use
  Company Number: HK-ASTRAZENECA-2008AC00559

PATIENT
  Age: 21 Year
  Sex: Male

DRUGS (2)
  1. OMEPRAZOLE [Suspect]
     Indication: ABDOMINAL PAIN UPPER
  2. KETAMINE HCL [Interacting]

REACTIONS (2)
  - DRUG INTERACTION [None]
  - HEPATIC FUNCTION ABNORMAL [None]
